FAERS Safety Report 8637104 (Version 2)
Quarter: 2013Q3

REPORT INFORMATION
  Report Type: Spontaneous
  Country: US (occurrence: US)
  Receive Date: 20120627
  Receipt Date: 20130722
  Transmission Date: 20140515
  Serious: Yes (Disabling)
  Sender: FDA-Public Use
  Company Number: US-ASTRAZENECA-2012SE35416

PATIENT
  Age: 53 Year
  Sex: Female
  Weight: 61.2 kg

DRUGS (8)
  1. NEXIUM [Suspect]
     Indication: GASTROOESOPHAGEAL REFLUX DISEASE
     Route: 048
     Dates: end: 2008
  2. NEXIUM [Suspect]
     Indication: GASTRITIS
     Route: 048
     Dates: end: 2008
  3. NEXIUM [Suspect]
     Indication: GASTROOESOPHAGEAL REFLUX DISEASE
     Route: 048
     Dates: end: 2008
  4. TAGAMET [Concomitant]
  5. MYLANTA [Concomitant]
  6. ATENOLOL [Concomitant]
     Indication: BLOOD PRESSURE
     Route: 048
  7. VITAMINS [Concomitant]
  8. OMEGA 3 [Concomitant]

REACTIONS (10)
  - Gallbladder disorder [Unknown]
  - Rotator cuff syndrome [Unknown]
  - Joint injury [Unknown]
  - Osteoporosis [Unknown]
  - Multiple fractures [Unknown]
  - Calcium deficiency [Unknown]
  - Cataract [Unknown]
  - Chest pain [Unknown]
  - Neck injury [Unknown]
  - Vitamin D deficiency [Unknown]
